FAERS Safety Report 7623470-4 (Version None)
Quarter: 2011Q3

REPORT INFORMATION
  Report Type: 
  Country: None (occurrence: None)
  Receive Date: 20110720
  Receipt Date: 20110714
  Transmission Date: 20111222
  Serious: Yes (Death, Other)
  Sender: FDA-Public Use
  Company Number: PHHY2011GB63279

PATIENT
  Age: 62 Year
  Sex: Female

DRUGS (2)
  1. SUCCINYLCHOLINE CHLORIDE [Suspect]
     Indication: ENDOTRACHEAL INTUBATION
     Dosage: 100 MG, UNK
     Route: 042
  2. SUCCINYLCHOLINE CHLORIDE [Suspect]
     Dosage: 100 MG, UNK
     Route: 042

REACTIONS (6)
  - TACHYCARDIA [None]
  - HYPOTENSION [None]
  - MUSCLE TWITCHING [None]
  - SEPSIS [None]
  - HYPERKALAEMIA [None]
  - AMYOTROPHIC LATERAL SCLEROSIS [None]
